FAERS Safety Report 9259086 (Version 2)
Quarter: 2013Q2

REPORT INFORMATION
  Report Type: Spontaneous
  Country: CA (occurrence: CA)
  Receive Date: 20130426
  Receipt Date: 20130513
  Transmission Date: 20140414
  Serious: Yes (Hospitalization)
  Sender: FDA-Public Use
  Company Number: CA-ASTRAZENECA-2013SE26796

PATIENT
  Age: 41 Year
  Sex: Female

DRUGS (8)
  1. VIMOVO [Suspect]
     Indication: BACK PAIN
     Dosage: 500 MG/20 MG, 2 DOSES, DAILY
     Route: 048
     Dates: start: 20130415, end: 20130416
  2. SYMBICORT [Concomitant]
     Dosage: 200 MCG, AS REQUIRED, USES ONCE A MONTH
     Route: 055
  3. VENOFER [Concomitant]
     Dosage: EVERY THREE MONTHS
  4. CYCLOBENZAPRINE [Concomitant]
     Dosage: DAILY AT NIGHT, AS REQUIRED, 3 DOSES
     Dates: end: 20130414
  5. LEVOTHYROXINE [Concomitant]
     Route: 048
  6. IBUPROFEN [Concomitant]
     Indication: DYSMENORRHOEA
     Dosage: AS REQUIRED
     Dates: end: 20130415
  7. TRANEXAMIC ACID [Concomitant]
     Indication: MENORRHAGIA
     Dosage: AS REQUIRED
  8. CUTIRATE [Concomitant]
     Indication: HAND DERMATITIS
     Dosage: DAILY AS REQUIRED, 3 TO 4 TIMES PER WEEK

REACTIONS (4)
  - Chest discomfort [Recovered/Resolved]
  - Urticaria [Recovered/Resolved]
  - Rash [Recovered/Resolved]
  - Dyspnoea [Recovered/Resolved]
